FAERS Safety Report 9664695 (Version 1)
Quarter: 2013Q4

REPORT INFORMATION
  Report Type: Spontaneous
  Country: FR (occurrence: FR)
  Receive Date: 20131101
  Receipt Date: 20131101
  Transmission Date: 20140711
  Serious: Yes (Hospitalization, Congenital Anomaly)
  Sender: FDA-Public Use
  Company Number: FR-TEVA-440943ISR

PATIENT
  Age: 1 Day
  Sex: Female

DRUGS (7)
  1. SPASFON [Suspect]
     Dosage: 6 TABLET DAILY; FROM THE 38TH WEEK OF AMENORRHEA TO THE TERM
     Route: 064
  2. AMOXICILLINE [Suspect]
     Indication: URINARY TRACT INFECTION
     Dosage: 2 GRAM DAILY; FROM THE 24TH TO THE 25TH WEEK OF AMENORRHEA
  3. CLOMID 50MG [Suspect]
     Indication: INFERTILITY
     Dosage: TREATEMENT IN MARCH, APRIL, MAY, AUGUST AND SEPTEMBER
     Route: 064
  4. DUPHASTON 10 MG [Suspect]
     Indication: INFERTILITY
     Dosage: TREATEMENT IN MARCH, APRIL, MAY, AUGUST AND SEPTEMBER
     Route: 064
  5. HUMALOG [Concomitant]
     Indication: GESTATIONAL DIABETES
     Dosage: FROM THE 34TH WEEK OF AMENORRHEA TO THE TERM
     Route: 064
  6. TIMOFEROL [Concomitant]
     Dosage: 50 MILLIGRAM DAILY; FROM THE 35TH WEEK OF AMENORRHEA TO THE TERM
     Route: 064
  7. MAGNE B6 (48MG/5MG) [Concomitant]
     Dosage: FROM THE 37TH WEEK OF AMENORRHEA TO THE TERM
     Route: 064

REACTIONS (1)
  - Urethral dilatation [Recovering/Resolving]
